FAERS Safety Report 6414548-1 (Version None)
Quarter: 2009Q4

REPORT INFORMATION
  Report Type: 
  Country: None (occurrence: None)
  Receive Date: 20091026
  Receipt Date: 20090812
  Transmission Date: 20100525
  Serious: Yes (Hospitalization)
  Sender: FDA-Public Use
  Company Number: PHHY2009GB25126

PATIENT
  Sex: Male

DRUGS (4)
  1. CLOZARIL [Suspect]
     Indication: SCHIZOPHRENIA
     Dosage: 100 MG MANE AND 300 MG NOCTE
     Dates: start: 19990505
  2. CLOZARIL [Suspect]
     Dosage: 700 MG/DAY
     Dates: start: 20090301
  3. RABEPRAZOLE [Concomitant]
     Indication: GASTRIC DISORDER
     Dosage: 10 MG, UNK
     Route: 048
  4. AMISULPRIDE [Concomitant]
     Indication: SCHIZOPHRENIA
     Dosage: 200 MG, UNK

REACTIONS (4)
  - ANTIPSYCHOTIC DRUG LEVEL INCREASED [None]
  - DRUG PRESCRIBING ERROR [None]
  - ORTHOSTATIC HYPOTENSION [None]
  - TREATMENT NONCOMPLIANCE [None]
